FAERS Safety Report 7973278-5 (Version None)
Quarter: 2011Q4

REPORT INFORMATION
  Report Type: 
  Country: None (occurrence: None)
  Receive Date: 20111213
  Receipt Date: 20111207
  Transmission Date: 20120403
  Serious: Yes (Death)
  Sender: FDA-Public Use
  Company Number: JP-GENZYME-FLUD-1000632

PATIENT
  Sex: Male
  Weight: 57 kg

DRUGS (10)
  1. FLUDARA [Suspect]
     Indication: PREMEDICATION
     Dosage: UNK
     Route: 065
     Dates: start: 20101013, end: 20101016
  2. FOSCARNET SODIUM [Concomitant]
     Indication: ANTIVIRAL PROPHYLAXIS
     Dosage: UNK
     Route: 065
     Dates: start: 20101027, end: 20101105
  3. CEFOZOPRAN HYDROCHLORIDE [Concomitant]
     Indication: ANTIBIOTIC PROPHYLAXIS
     Dosage: UNK
     Route: 065
     Dates: start: 20101014, end: 20101018
  4. TEICOPLANIN [Concomitant]
     Indication: ANTIBIOTIC PROPHYLAXIS
     Dosage: UNK
     Route: 065
     Dates: start: 20101025, end: 20101105
  5. CYCLOPHOSPHAMIDE [Concomitant]
     Indication: PREMEDICATION
     Dosage: UNK
     Route: 065
     Dates: start: 20101013, end: 20101016
  6. METHOTREXATE [Concomitant]
     Indication: PROPHYLAXIS AGAINST GRAFT VERSUS HOST DISEASE
     Dosage: UNK
     Route: 065
     Dates: start: 20101019, end: 20101025
  7. THYMOGLOBULIN [Suspect]
     Indication: PREMEDICATION
     Dosage: 125 MG, QD
     Route: 042
     Dates: start: 20101013, end: 20101016
  8. PIPERACILLIN W [Concomitant]
     Indication: ANTIBIOTIC PROPHYLAXIS
     Dosage: UNK
     Route: 065
     Dates: start: 20101018, end: 20101022
  9. DORIPENEM HYDRATE [Concomitant]
     Indication: ANTIBIOTIC PROPHYLAXIS
     Dosage: UNK
     Route: 065
     Dates: start: 20101022, end: 20101027
  10. AMPHOTERICIN B [Concomitant]
     Indication: ANTIFUNGAL PROPHYLAXIS
     Dosage: UNK
     Route: 065
     Dates: start: 20101025, end: 20101104

REACTIONS (1)
  - ENTEROCOCCAL SEPSIS [None]
